FAERS Safety Report 6883965-8 (Version None)
Quarter: 2010Q3

REPORT INFORMATION
  Report Type: 
  Country: None (occurrence: None)
  Receive Date: 20100729
  Receipt Date: 20100728
  Transmission Date: 20110219
  Serious: Yes (Death, Other)
  Sender: FDA-Public Use
  Company Number: US-ROXANE LABORATORIES, INC.-2010-RO-00929RO

PATIENT
  Age: 51 Year
  Sex: Female
  Weight: 114 kg

DRUGS (10)
  1. METHADONE HCL [Suspect]
  2. METHADONE HCL [Suspect]
     Dosage: 720 MG
  3. LORAZEPAM [Suspect]
  4. BUPROPION HCL [Suspect]
  5. OXYCODONE [Suspect]
  6. GABAPENTIN [Suspect]
  7. VENLAFAXINE [Suspect]
  8. ZANTREX [Suspect]
  9. NYQUIL [Suspect]
     Indication: INFLUENZA LIKE ILLNESS
  10. IBUPROFEN TABLETS [Suspect]

REACTIONS (14)
  - ARTERIOSCLEROSIS CORONARY ARTERY [None]
  - BLOOD ETHANOL INCREASED [None]
  - BRONCHITIS CHRONIC [None]
  - ELECTROCARDIOGRAM QT PROLONGED [None]
  - HEPATIC STEATOSIS [None]
  - INFLUENZA LIKE ILLNESS [None]
  - LOBAR PNEUMONIA [None]
  - OVERDOSE [None]
  - PNEUMONIA PNEUMOCOCCAL [None]
  - PYELONEPHRITIS CHRONIC [None]
  - RESPIRATORY DEPRESSION [None]
  - STREPTOCOCCAL INFECTION [None]
  - UNRESPONSIVE TO STIMULI [None]
  - VENTRICULAR ARRHYTHMIA [None]
